FAERS Safety Report 12600389 (Version 1)
Quarter: 2016Q3

REPORT INFORMATION
  Report Type: Spontaneous
  Country: US (occurrence: US)
  Receive Date: 20160727
  Receipt Date: 20160727
  Transmission Date: 20161109
  Serious: Yes (Other)
  Sender: FDA-Public Use
  Company Number: US-AMNEAL PHARMACEUTICALS-2016AMN00407

PATIENT
  Age: 72 Year
  Sex: Male
  Weight: 73.47 kg

DRUGS (5)
  1. FERROUS SULFATE. [Concomitant]
     Active Substance: FERROUS SULFATE
     Dosage: TWO TABLETS , TWO TIMES A DAY
     Route: 048
  2. METFORMIN [Concomitant]
     Active Substance: METFORMIN HYDROCHLORIDE
  3. GLUCOSIDE [Concomitant]
  4. FOSINTRIL [Concomitant]
  5. RANITIDINE. [Suspect]
     Active Substance: RANITIDINE
     Dosage: ONE TABLET , ONE TIME A DAY

REACTIONS (3)
  - Dyspepsia [Unknown]
  - Wrong drug administered [Unknown]
  - Stomach mass [Unknown]

NARRATIVE: CASE EVENT DATE: 20160101
